FAERS Safety Report 6550680-X (Version None)
Quarter: 2010Q1

REPORT INFORMATION
  Report Type: 
  Country: None (occurrence: None)
  Receive Date: 20100125
  Receipt Date: 20091023
  Transmission Date: 20100710
  Serious: No
  Sender: FDA-Public Use
  Company Number: US-TYCO HEALTHCARE/MALLINCKRODT-T200901949

PATIENT
  Age: 64 Year
  Sex: Female

DRUGS (1)
  1. OPTIRAY 350 [Suspect]
     Dosage: 100 ML (CC), SINGLE
     Route: 042
     Dates: start: 20091023, end: 20091023

REACTIONS (2)
  - ORAL MUCOSAL ERUPTION [None]
  - SNEEZING [None]
